FAERS Safety Report 5390580-4 (Version None)
Quarter: 2007Q3

REPORT INFORMATION
  Report Type: 
  Country: None (occurrence: None)
  Receive Date: 20070718
  Receipt Date: 20060912
  Transmission Date: 20080115
  Serious: No
  Sender: FDA-Public Use
  Company Number: US-KINGPHARMUSA00001-K200601164

PATIENT

DRUGS (3)
  1. LEVOXYL [Suspect]
     Indication: HYPOTHYROIDISM
     Dosage: 50 MCG, UNK
  2. LEVOXYL [Suspect]
     Dosage: 25 MCG, QD
     Route: 048
     Dates: start: 20060701
  3. XALATAN [Concomitant]
     Indication: GLAUCOMA
     Dosage: UNK, UNK

REACTIONS (2)
  - BLOOD THYROID STIMULATING HORMONE INCREASED [None]
  - WEIGHT DECREASED [None]
